FAERS Safety Report 5076937-X (Version None)
Quarter: 2006Q3

REPORT INFORMATION
  Report Type: 
  Country: None (occurrence: None)
  Receive Date: 20060810
  Receipt Date: 20060803
  Transmission Date: 20061208
  Serious: Yes (Life-Threatening)
  Sender: FDA-Public Use
  Company Number: FR-SANOFI-SYNTHELABO-A02200601979

PATIENT
  Age: 55 Year
  Sex: Female
  Weight: 124 kg

DRUGS (6)
  1. DAFALGAN CODEINE [Suspect]
     Indication: MUSCULOSKELETAL PAIN
     Dosage: UNK
     Route: 048
  2. ALTEIS [Suspect]
     Indication: HYPERTENSION
     Route: 048
     Dates: start: 20060501
  3. PARIET [Suspect]
     Indication: DRUG USE FOR UNKNOWN INDICATION
     Route: 048
  4. BUFLOMEDIL [Suspect]
     Indication: SKIN ULCER
     Dosage: UNK
     Route: 048
  5. SEROPRAM [Suspect]
     Indication: DYSTHYMIC DISORDER
     Route: 048
     Dates: start: 20051201
  6. PLAVIX [Suspect]
     Indication: DRUG USE FOR UNKNOWN INDICATION
     Route: 048

REACTIONS (11)
  - BLOOD POTASSIUM INCREASED [None]
  - DEPRESSED LEVEL OF CONSCIOUSNESS [None]
  - GASTRIC ULCER PERFORATION [None]
  - PERITONEAL PERFORATION [None]
  - PERITONITIS [None]
  - PNEUMOPERITONEUM [None]
  - RENAL FAILURE [None]
  - SEPSIS [None]
  - SKIN ULCER [None]
  - SUPERINFECTION [None]
  - TACHYCARDIA [None]
